FAERS Safety Report 9169277 (Version 7)
Quarter: 2013Q3

REPORT INFORMATION
  Report Type: Report from Study
  Country: US (occurrence: US)
  Receive Date: 20130318
  Receipt Date: 20130729
  Transmission Date: 20140515
  Serious: Yes (Life-Threatening, Hospitalization)
  Sender: FDA-Public Use
  Company Number: US-ROCHE-1197127

PATIENT
  Age: 68 Year
  Sex: Female

DRUGS (47)
  1. VEMURAFENIB [Suspect]
     Indication: PAPILLARY THYROID CANCER
     Route: 065
     Dates: start: 20120326, end: 20120424
  2. VEMURAFENIB [Suspect]
     Route: 065
     Dates: start: 20120430, end: 20130213
  3. VEMURAFENIB [Suspect]
     Dosage: LAST DOSE PRIOR TO SAE 25/FEB/2013
     Route: 065
     Dates: start: 20130220, end: 20130225
  4. RITALIN [Concomitant]
     Indication: DEPRESSED LEVEL OF CONSCIOUSNESS
     Route: 048
     Dates: start: 20120330, end: 20120521
  5. GUAIFENESIN [Concomitant]
     Route: 048
     Dates: start: 201110, end: 20120910
  6. ZOFRAN [Concomitant]
     Indication: FOOD POISONING
     Route: 042
     Dates: start: 20120426
  7. NORMAL SALINE [Concomitant]
     Indication: DEHYDRATION
     Route: 065
     Dates: start: 20120425, end: 20120425
  8. POTASSIUM CHLORIDE [Concomitant]
     Indication: HYPOKALAEMIA
     Route: 048
     Dates: start: 20120426, end: 20120426
  9. POTASSIUM CHLORIDE [Concomitant]
     Route: 042
     Dates: start: 20120425, end: 20120425
  10. LACTATED RINGER^S [Concomitant]
     Indication: DEHYDRATION
     Route: 042
     Dates: start: 20120425, end: 20120425
  11. VALTREX [Concomitant]
     Route: 048
     Dates: start: 20120515
  12. VALTREX [Concomitant]
     Route: 048
     Dates: start: 20120816, end: 20120816
  13. VALTREX [Concomitant]
     Route: 048
     Dates: start: 20120817, end: 20120831
  14. NAPROXEN SODIUM [Concomitant]
     Indication: HEADACHE
     Route: 048
     Dates: start: 20120618
  15. IMODIUM [Concomitant]
     Route: 048
     Dates: start: 20120619
  16. LEVAQUIN [Concomitant]
     Route: 048
     Dates: start: 20120717, end: 20120727
  17. ACYCLOVIR [Concomitant]
     Indication: HERPES SIMPLEX
     Route: 048
     Dates: start: 20120809, end: 20120809
  18. XYLOXYLIN MOUTHWASH [Concomitant]
     Indication: STOMATITIS
     Dosage: 10-15 ML
     Route: 048
     Dates: start: 20120814, end: 20121231
  19. SILVADENE [Concomitant]
     Indication: DERMATITIS
     Route: 061
     Dates: start: 20120815
  20. BACTROBAN [Concomitant]
     Dosage: 1 APPLICATION
     Route: 061
     Dates: start: 20120815, end: 20121009
  21. MUPIROCIN [Concomitant]
     Dosage: 1 APPLICATION
     Route: 061
     Dates: start: 20120910
  22. DOXYCYCLINE [Concomitant]
     Route: 048
     Dates: start: 20121211, end: 20130117
  23. XGEVA [Concomitant]
     Route: 058
     Dates: start: 20130117
  24. CLINDAMYCIN [Concomitant]
     Route: 048
     Dates: start: 20130211, end: 20130213
  25. LOMOTIL [Concomitant]
     Route: 048
     Dates: start: 20130213
  26. ALPRAZOLAM [Concomitant]
     Indication: ANXIETY
     Route: 048
     Dates: start: 2007
  27. ALPRAZOLAM [Concomitant]
     Route: 048
     Dates: start: 20120626, end: 20120626
  28. AMLODIPINE [Concomitant]
     Indication: HYPERTENSION
     Route: 048
     Dates: start: 2010
  29. FLEXERIL [Concomitant]
     Indication: ARTHRALGIA
     Route: 048
     Dates: start: 2011
  30. TRAMADOL [Concomitant]
     Indication: HEADACHE
     Route: 048
     Dates: start: 20120306, end: 20120326
  31. TRAMADOL [Concomitant]
     Route: 048
     Dates: start: 20120330, end: 20120423
  32. TRAMADOL [Concomitant]
     Route: 048
     Dates: start: 20120424, end: 20120910
  33. TRAMADOL [Concomitant]
     Route: 048
     Dates: start: 20121009
  34. OMEPRAZOLE [Concomitant]
     Indication: GASTROOESOPHAGEAL REFLUX DISEASE
     Route: 048
     Dates: start: 20120326, end: 20120425
  35. GABAPENTIN [Concomitant]
     Route: 048
     Dates: start: 20120422, end: 20120617
  36. GABAPENTIN [Concomitant]
     Route: 048
     Dates: start: 20120618
  37. XOPENEX [Concomitant]
     Indication: DYSPNOEA
     Route: 050
     Dates: start: 2012, end: 20120618
  38. XOPENEX [Concomitant]
     Route: 065
     Dates: start: 20130228
  39. NYSTATIN/TRIAMCINOLONE [Concomitant]
     Dosage: 1 APPLICATION
     Route: 061
     Dates: start: 2012, end: 20120415
  40. NYSTATIN/TRIAMCINOLONE [Concomitant]
     Route: 061
     Dates: start: 20120416
  41. LEVOTHYROXINE [Concomitant]
     Indication: HYPOTHYROIDISM
     Route: 048
     Dates: start: 2008, end: 20120715
  42. LEVOTHYROXINE [Concomitant]
     Route: 048
     Dates: start: 20120716
  43. CYMBALTA [Concomitant]
     Indication: DEPRESSION
     Route: 048
     Dates: start: 2009
  44. ZITHROMAX [Concomitant]
     Indication: BRONCHITIS
     Route: 048
     Dates: start: 20130311, end: 20130315
  45. DILAUDID [Concomitant]
     Indication: HEADACHE
     Route: 048
     Dates: start: 20120313, end: 20120326
  46. DILAUDID [Concomitant]
     Route: 048
     Dates: start: 20120327, end: 20120330
  47. DILAUDID [Concomitant]
     Route: 048
     Dates: start: 20120331, end: 20120410

REACTIONS (1)
  - Squamous cell carcinoma [Not Recovered/Not Resolved]
